FAERS Safety Report 23582326 (Version 5)
Quarter: 2025Q4

REPORT INFORMATION
  Report Type: Spontaneous
  Country: US (occurrence: US)
  Receive Date: 20240229
  Receipt Date: 20251027
  Transmission Date: 20260118
  Serious: No
  Sender: SANOFI AVENTIS
  Company Number: US-SA-SAC20240227000804

PATIENT
  Age: 76 Year
  Sex: Female

DRUGS (1)
  1. DUPIXENT [Suspect]
     Active Substance: DUPILUMAB
     Indication: Dermatitis atopic
     Dosage: 300 MG, QOW
     Route: 058
     Dates: start: 202311

REACTIONS (10)
  - Dry skin [Unknown]
  - Dyspnoea [Recovering/Resolving]
  - Back pain [Recovering/Resolving]
  - Inappropriate schedule of product administration [Recovering/Resolving]
  - Myalgia [Recovering/Resolving]
  - Viral infection [Unknown]
  - Eye pruritus [Unknown]
  - Dry eye [Unknown]
  - Accidental exposure to product [Unknown]
  - Exposure via skin contact [Unknown]
